FAERS Safety Report 9057271 (Version 2)
Quarter: 2014Q1

REPORT INFORMATION
  Report Type: Report from Study
  Country: JP (occurrence: JP)
  Receive Date: 20130131
  Receipt Date: 20140311
  Transmission Date: 20141002
  Serious: Yes (Other)
  Sender: FDA-Public Use
  Company Number: JP-GLAXOSMITHKLINE-B0860311A

PATIENT
  Age: 54 Year
  Sex: Female
  Weight: 55 kg

DRUGS (8)
  1. TYKERB [Suspect]
     Indication: BREAST CANCER
     Route: 048
     Dates: start: 20090828, end: 20091022
  2. TYKERB [Suspect]
     Indication: BREAST CANCER
     Route: 048
     Dates: start: 20091105, end: 20091224
  3. TYKERB [Suspect]
     Indication: BREAST CANCER
     Route: 048
     Dates: start: 20100107
  4. TYKERB [Suspect]
     Indication: BREAST CANCER
     Route: 048
     Dates: end: 20100819
  5. XELODA [Suspect]
     Indication: BREAST CANCER
     Route: 048
     Dates: start: 20090828, end: 20091022
  6. XELODA [Suspect]
     Indication: BREAST CANCER
     Route: 048
     Dates: start: 20091105, end: 20091224
  7. XELODA [Suspect]
     Indication: BREAST CANCER
     Route: 048
     Dates: start: 20100107, end: 20100819
  8. MOHRUS TAPE [Concomitant]
     Indication: PAIN IN EXTREMITY
     Route: 061
     Dates: start: 20090422, end: 20110316

REACTIONS (6)
  - Cellulitis [Recovering/Resolving]
  - Hyperbilirubinaemia [Recovering/Resolving]
  - Stomatitis [Recovering/Resolving]
  - Upper respiratory tract inflammation [Recovered/Resolved]
  - Aspartate aminotransferase increased [Recovered/Resolved]
  - Alanine aminotransferase increased [Recovered/Resolved]
